FAERS Safety Report 13016979 (Version 3)
Quarter: 2017Q1

REPORT INFORMATION
  Report Type: Report from Study
  Country: CA (occurrence: CA)
  Receive Date: 20161212
  Receipt Date: 20170321
  Transmission Date: 20170428
  Serious: Yes (Life-Threatening, Other)
  Sender: FDA-Public Use
  Company Number: PHHY2016CA153968

PATIENT
  Sex: Female

DRUGS (3)
  1. AFINITOR [Suspect]
     Active Substance: EVEROLIMUS
     Dosage: 5 MG, QD
     Route: 048
     Dates: start: 20161227
  2. SPIRIVA [Concomitant]
     Active Substance: TIOTROPIUM BROMIDE MONOHYDRATE
     Indication: PRODUCT USED FOR UNKNOWN INDICATION
     Route: 065
  3. AFINITOR [Suspect]
     Active Substance: EVEROLIMUS
     Indication: BREAST CANCER
     Dosage: 10 MG, QD
     Route: 048
     Dates: start: 20161103, end: 20161201

REACTIONS (10)
  - Oral discomfort [Recovering/Resolving]
  - Tonsillar inflammation [Recovered/Resolved]
  - Feeding disorder [Recovering/Resolving]
  - Oropharyngeal pain [Unknown]
  - Hepatic steatosis [Unknown]
  - Tongue discomfort [Recovering/Resolving]
  - Dysphagia [Recovered/Resolved]
  - Nausea [Recovered/Resolved]
  - Infarction [Unknown]
  - Feeling abnormal [Recovering/Resolving]
